FAERS Safety Report 5283187-0 (Version None)
Quarter: 2007Q2

REPORT INFORMATION
  Report Type: 
  Country: None (occurrence: None)
  Receive Date: 20070402
  Receipt Date: 20070329
  Transmission Date: 20071010
  Serious: Yes (Hospitalization, Other)
  Sender: FDA-Public Use
  Company Number: BR-GLAXOSMITHKLINE-A0645301A

PATIENT
  Age: 87 Year
  Sex: Female
  Weight: 100 kg

DRUGS (4)
  1. SERETIDE [Suspect]
     Indication: CHRONIC OBSTRUCTIVE PULMONARY DISEASE
     Dates: start: 20061001
  2. SPIRIVA [Concomitant]
     Dates: start: 20020101
  3. COMBIVENT [Concomitant]
     Dosage: 2PUFF FOUR TIMES PER DAY
     Route: 055
     Dates: start: 20061128
  4. ALDACTONE [Concomitant]
     Dates: start: 20010101

REACTIONS (2)
  - APNOEA [None]
  - EMPHYSEMA [None]
